FAERS Safety Report 8549040-1 (Version None)
Quarter: 2012Q3

REPORT INFORMATION
  Report Type: 
  Country: None (occurrence: None)
  Receive Date: 20120730
  Receipt Date: 20120725
  Transmission Date: 20120928
  Serious: No
  Sender: FDA-Public Use
  Company Number: US-PFIZER INC-2012180240

PATIENT
  Sex: Male
  Weight: 9.977 kg

DRUGS (1)
  1. CHILDREN'S ADVIL [Suspect]
     Indication: BODY TEMPERATURE INCREASED
     Dosage: 1.875 ML, EVERY SIX HOURS
     Dates: start: 20120722, end: 20120724

REACTIONS (1)
  - RASH MACULAR [None]
